FAERS Safety Report 4743501-9 (Version None)
Quarter: 2005Q3

REPORT INFORMATION
  Report Type: 
  Country: None (occurrence: None)
  Receive Date: 20050812
  Receipt Date: 20050805
  Transmission Date: 20060218
  Serious: Yes (Hospitalization)
  Sender: FDA-Public Use
  Company Number: PHEH2005US08745

PATIENT
  Age: 24 Year
  Sex: Female

DRUGS (2)
  1. CLOZARIL [Suspect]
  2. ABILIFY [Concomitant]
     Dosage: UNK, UNK
     Dates: start: 20050101

REACTIONS (3)
  - CARDIOMEGALY [None]
  - FEELING ABNORMAL [None]
  - WEIGHT INCREASED [None]
